FAERS Safety Report 8469775-9 (Version None)
Quarter: 2012Q2

REPORT INFORMATION
  Report Type: 
  Country: None (occurrence: None)
  Receive Date: 20120626
  Receipt Date: 20120620
  Transmission Date: 20120825
  Serious: Yes (Hospitalization)
  Sender: FDA-Public Use
  Company Number: FR-MERCK-1204USA02262

PATIENT
  Age: 88 Year
  Sex: Male

DRUGS (4)
  1. PRIMAXIN [Suspect]
     Indication: PROSTATITIS
     Route: 042
     Dates: start: 20120207, end: 20120224
  2. PRIMAXIN [Suspect]
     Route: 065
     Dates: start: 20120201
  3. PRIMAXIN [Suspect]
     Route: 065
     Dates: start: 20120201
  4. PRIMAXIN [Suspect]
     Indication: SEPTIC SHOCK
     Route: 042
     Dates: start: 20120207, end: 20120224

REACTIONS (3)
  - PHOTOPHOBIA [None]
  - PARAESTHESIA [None]
  - CONFUSIONAL STATE [None]
